FAERS Safety Report 8904586 (Version 8)
Quarter: 2014Q4

REPORT INFORMATION
  Report Type: Spontaneous
  Country: US (occurrence: US)
  Receive Date: 20121112
  Receipt Date: 20141217
  Transmission Date: 20150529
  Serious: Yes (Hospitalization, Disabling, Other)
  Sender: FDA-Public Use
  Company Number: US-009507513-1211USA004401

PATIENT
  Sex: Female
  Weight: 99.77 kg

DRUGS (6)
  1. FOSAMAX PLUS D [Suspect]
     Active Substance: ALENDRONATE SODIUM\CHOLECALCIFEROL
     Indication: OSTEOPENIA
  2. ALENDRONATE SODIUM. [Suspect]
     Active Substance: ALENDRONATE SODIUM
     Indication: OSTEOPOROSIS
     Dosage: 70 MG, QW
     Route: 048
     Dates: start: 20110611, end: 20111005
  3. ALENDRONATE SODIUM. [Suspect]
     Active Substance: ALENDRONATE SODIUM
     Indication: OSTEOPENIA
  4. FOSAMAX [Suspect]
     Active Substance: ALENDRONATE SODIUM
     Indication: OSTEOPENIA
  5. FOSAMAX PLUS D [Suspect]
     Active Substance: ALENDRONATE SODIUM\CHOLECALCIFEROL
     Indication: OSTEOPOROSIS
     Dosage: 70 MG/2800 IU, QW
     Route: 048
     Dates: start: 20070706, end: 20090504
  6. FOSAMAX [Suspect]
     Active Substance: ALENDRONATE SODIUM
     Indication: OSTEOPOROSIS
     Dosage: UNK
     Route: 048
     Dates: start: 2007

REACTIONS (42)
  - Vulval disorder [Unknown]
  - Restless legs syndrome [Unknown]
  - Osteoarthritis [Unknown]
  - Femur fracture [Not Recovered/Not Resolved]
  - Seizure [Unknown]
  - Insomnia [Unknown]
  - Corneal abrasion [Unknown]
  - Pyrexia [Unknown]
  - Intramedullary rod insertion [Not Recovered/Not Resolved]
  - Calcium deficiency [Unknown]
  - Choking [Recovered/Resolved]
  - Eye disorder [Unknown]
  - Herpes zoster [Unknown]
  - Cataract [Unknown]
  - Headache [Not Recovered/Not Resolved]
  - Cholecystectomy [Unknown]
  - Dyspepsia [Unknown]
  - Arthralgia [Unknown]
  - Thermal burn [Unknown]
  - Lichen planus [Unknown]
  - Skin disorder [Unknown]
  - Pain [Unknown]
  - Vaginal infection [Unknown]
  - Bacterial infection [Unknown]
  - Gastritis [Unknown]
  - Muscle spasms [Unknown]
  - Depression [Unknown]
  - Laceration [Unknown]
  - Nail disorder [Unknown]
  - Fall [Unknown]
  - Constipation [Unknown]
  - Incision site infection [Unknown]
  - Burn debridement [Unknown]
  - Cardiac failure congestive [Unknown]
  - Knee deformity [Unknown]
  - Hip arthroplasty [Unknown]
  - Anxiety [Unknown]
  - Adverse event [Unknown]
  - Fungal infection [Unknown]
  - Cataract operation [Unknown]
  - Foot fracture [Unknown]
  - Back pain [Unknown]

NARRATIVE: CASE EVENT DATE: 20070419
